FAERS Safety Report 17179064 (Version 1)
Quarter: 2019Q4

REPORT INFORMATION
  Report Type: Report from Study
  Country: US (occurrence: US)
  Receive Date: 20191219
  Receipt Date: 20191219
  Transmission Date: 20200122
  Serious: Yes (Hospitalization)
  Sender: FDA-Public Use
  Company Number: US-GILEAD-2019-0443614

PATIENT
  Age: 49 Year
  Sex: Female

DRUGS (2)
  1. ORKAMBI [Concomitant]
     Active Substance: IVACAFTOR\LUMACAFTOR
  2. AZTREONAM LYSINE [Suspect]
     Active Substance: AZTREONAM LYSINE
     Indication: CYSTIC FIBROSIS
     Dosage: 75 MG, TID 28 DAYS ON AND 28 DAYS OFF
     Route: 055

REACTIONS (1)
  - Asthma [Unknown]
